FAERS Safety Report 7315630-7 (Version None)
Quarter: 2011Q1

REPORT INFORMATION
  Report Type: 
  Country: None (occurrence: None)
  Receive Date: 20110225
  Receipt Date: 20110218
  Transmission Date: 20110831
  Serious: Yes (Other)
  Sender: FDA-Public Use
  Company Number: US-AMGEN-USASP2011009906

PATIENT
  Age: 80 Year
  Sex: Male

DRUGS (2)
  1. IVIGLOB-EX [Concomitant]
  2. NPLATE [Suspect]
     Indication: THROMBOCYTOPENIA
     Dosage: 400 A?G, UNK
     Dates: start: 20100114, end: 20101011

REACTIONS (1)
  - RETINAL ARTERY OCCLUSION [None]
